FAERS Safety Report 16219466 (Version 1)
Quarter: 2019Q2

REPORT INFORMATION
  Report Type: Spontaneous
  Country: US (occurrence: US)
  Receive Date: 20190420
  Receipt Date: 20190420
  Transmission Date: 20190711
  Serious: No
  Sender: FDA-Public Use
  Company Number: US-JNJFOC-20190406066

PATIENT
  Age: 78 Year
  Sex: Male

DRUGS (2)
  1. IMBRUVICA [Suspect]
     Active Substance: IBRUTINIB
     Indication: CHRONIC LYMPHOCYTIC LEUKAEMIA
     Route: 065
  2. APIXABAN [Suspect]
     Active Substance: APIXABAN
     Indication: ANTICOAGULANT THERAPY
     Route: 065

REACTIONS (2)
  - Haemorrhage [Unknown]
  - Atrial fibrillation [Unknown]
